FAERS Safety Report 7042362-5 (Version None)
Quarter: 2010Q4

REPORT INFORMATION
  Report Type: 
  Country: None (occurrence: None)
  Receive Date: 20101013
  Receipt Date: 20090922
  Transmission Date: 20110411
  Serious: No
  Sender: FDA-Public Use
  Company Number: US-ASTRAZENECA-2009SE14693

PATIENT
  Age: 19581 Day
  Sex: Female
  Weight: 90.7 kg

DRUGS (4)
  1. SYMBICORT [Suspect]
     Indication: RESPIRATORY TRACT CONGESTION
     Dosage: 640 UG
     Route: 055
     Dates: start: 20090915, end: 20090919
  2. SINGULAIR [Concomitant]
  3. PROPRANOLOL [Concomitant]
  4. CLARITIN [Concomitant]

REACTIONS (3)
  - BLOOD URINE PRESENT [None]
  - DYSPHONIA [None]
  - HAEMATOCHEZIA [None]
